FAERS Safety Report 5615079-9 (Version None)
Quarter: 2008Q1

REPORT INFORMATION
  Report Type: 
  Country: None (occurrence: None)
  Receive Date: 20080206
  Receipt Date: 20061221
  Transmission Date: 20080703
  Serious: No
  Sender: FDA-Public Use
  Company Number: A0632459A

PATIENT
  Age: 48 Year
  Sex: Female

DRUGS (8)
  1. ARIXTRA [Suspect]
     Dosage: 2.5MG PER DAY
     Route: 058
     Dates: start: 20061027
  2. PROGRAF [Concomitant]
  3. CLONAZEPAM [Concomitant]
  4. WELLBUTRIN [Concomitant]
  5. ALDACTONE [Concomitant]
  6. LASIX [Concomitant]
  7. AMITRIPTYLINE HCL [Concomitant]
  8. AMBIEN [Concomitant]

REACTIONS (2)
  - INJECTION SITE BRUISING [None]
  - INJECTION SITE INDURATION [None]
